FAERS Safety Report 17078723 (Version 1)
Quarter: 2019Q4

REPORT INFORMATION
  Report Type: Spontaneous
  Country: DE (occurrence: DE)
  Receive Date: 20191127
  Receipt Date: 20191127
  Transmission Date: 20200122
  Serious: Yes (Other)
  Sender: FDA-Public Use
  Company Number: DE-PFIZER INC-2019506414

PATIENT
  Sex: Male
  Weight: 3.8 kg

DRUGS (6)
  1. THYROXIN [Concomitant]
     Active Substance: LEVOTHYROXINE
     Indication: HYPOTHYROIDISM
     Dosage: 75 [?G/D ], 0. - 35. GESTATIONAL WEEK
     Route: 064
     Dates: start: 20180703, end: 20190305
  2. VENLAFAXINE HCL [Suspect]
     Active Substance: VENLAFAXINE HYDROCHLORIDE
     Indication: BIPOLAR DISORDER
     Dosage: 225 [MG/D ], 0. - 37.4. GESTATIONAL WEEK
     Route: 064
     Dates: start: 20180703, end: 20190323
  3. INSULIN BASAL [Concomitant]
     Active Substance: INSULIN NOS
     Indication: GESTATIONAL DIABETES
     Dosage: 14 [I.E./D (5-3-6) ], 30.3. - 35. GESTATIONAL WEEK
     Route: 064
  4. FOLSAEURE [Concomitant]
     Active Substance: FOLIC ACID
     Indication: PROPHYLAXIS OF NEURAL TUBE DEFECT
     Dosage: 0. - 12. GESTATIONAL WEEK
     Route: 064
  5. QUILONUM RETARD [Suspect]
     Active Substance: LITHIUM CARBONATE
     Indication: BIPOLAR DISORDER
     Dosage: 1350 [MG/D (675- 0- 675)] 2 SEPARATED DOSES,0. - 37.4. GESTATIONAL WEEK
     Route: 064
     Dates: start: 20180703, end: 20190323
  6. FRAGMIN [Concomitant]
     Active Substance: DALTEPARIN SODIUM
     Indication: PROPHYLAXIS OF ABORTION
     Dosage: 5000 [I.E./D ], 0. - 35. GESTATIONAL WEEK
     Route: 064
     Dates: start: 20180703, end: 20190305

REACTIONS (4)
  - Floppy infant [Recovered/Resolved]
  - Hypotonia neonatal [Recovered/Resolved]
  - Maternal exposure during pregnancy [Unknown]
  - Respiratory disorder neonatal [Recovered/Resolved]

NARRATIVE: CASE EVENT DATE: 20190323
